FAERS Safety Report 23543183 (Version 4)
Quarter: 2024Q3

REPORT INFORMATION
  Report Type: Spontaneous
  Country: US (occurrence: US)
  Receive Date: 20240220
  Receipt Date: 20240821
  Transmission Date: 20241017
  Serious: No
  Sender: SANOFI AVENTIS
  Company Number: US-SA-SAC20240219000177

PATIENT
  Age: 44 Year
  Sex: Female

DRUGS (4)
  1. DUPIXENT [Suspect]
     Active Substance: DUPILUMAB
     Indication: Eczema
     Dosage: 600 MG, 1X
     Route: 058
     Dates: start: 20231222, end: 20231222
  2. DUPIXENT [Suspect]
     Active Substance: DUPILUMAB
     Dosage: 300 MG, QOW
     Route: 058
     Dates: start: 202401
  3. DUPIXENT [Suspect]
     Active Substance: DUPILUMAB
     Dosage: 300 MG, QW
     Route: 058
     Dates: start: 20240517
  4. OTEZLA [Concomitant]
     Active Substance: APREMILAST
     Dosage: UNK

REACTIONS (12)
  - Loss of personal independence in daily activities [Unknown]
  - Agitation [Recovering/Resolving]
  - Eczema [Unknown]
  - Pruritus [Recovering/Resolving]
  - Stress [Unknown]
  - Dry skin [Recovering/Resolving]
  - Therapeutic response decreased [Unknown]
  - Skin exfoliation [Recovering/Resolving]
  - Skin burning sensation [Recovering/Resolving]
  - Skin laceration [Recovering/Resolving]
  - Inappropriate schedule of product administration [Unknown]
  - Off label use [Unknown]

NARRATIVE: CASE EVENT DATE: 20240101
